FAERS Safety Report 5313091-0 (Version None)
Quarter: 2007Q2

REPORT INFORMATION
  Report Type: 
  Country: None (occurrence: None)
  Receive Date: 20070430
  Receipt Date: 20070418
  Transmission Date: 20071010
  Serious: Yes (Hospitalization)
  Sender: FDA-Public Use
  Company Number: FR-PFIZER INC-2007031615

PATIENT
  Age: 73 Year
  Sex: Female

DRUGS (6)
  1. TAHOR [Suspect]
     Route: 048
  2. AMARYL [Suspect]
     Route: 048
  3. CARDENSIEL [Suspect]
     Route: 048
  4. PREVISCAN [Suspect]
     Route: 048
  5. LASIX [Suspect]
     Dosage: DAILY DOSE:60MG
     Route: 048
  6. TRIATEC [Suspect]
     Route: 048

REACTIONS (4)
  - ANOREXIA [None]
  - CARDIAC PACEMAKER INSERTION [None]
  - PRURITUS [None]
  - WEIGHT DECREASED [None]
